FAERS Safety Report 19281469 (Version 1)
Quarter: 2021Q2

REPORT INFORMATION
  Report Type: Spontaneous
  Country: GB (occurrence: GB)
  Receive Date: 20210520
  Receipt Date: 20210520
  Transmission Date: 20210717
  Serious: Yes (Other)
  Sender: FDA-Public Use
  Company Number: GB-PFIZER INC-2021535182

PATIENT
  Age: 31 Year
  Sex: Female
  Weight: 56 kg

DRUGS (2)
  1. FROVATRIPTAN. [Concomitant]
     Active Substance: FROVATRIPTAN
     Indication: ILL-DEFINED DISORDER
     Dosage: UNK
  2. SAYANA PRESS [Suspect]
     Active Substance: MEDROXYPROGESTERONE\MEDROXYPROGESTERONE ACETATE
     Indication: CONTRACEPTION
     Dosage: 1 DF, CYCLIC (1 INJECTOR EVERY 12?13 WEEKS)
     Route: 051
     Dates: start: 20201111, end: 20210511

REACTIONS (1)
  - Lipodystrophy acquired [Not Recovered/Not Resolved]
